FAERS Safety Report 8209730-7 (Version None)
Quarter: 2012Q1

REPORT INFORMATION
  Report Type: 
  Country: None (occurrence: None)
  Receive Date: 20120314
  Receipt Date: 20120309
  Transmission Date: 20120608
  Serious: Yes (Hospitalization)
  Sender: FDA-Public Use
  Company Number: BR-PFIZER INC-2012064243

PATIENT
  Age: 56 Year
  Sex: Male

DRUGS (7)
  1. LYRICA [Suspect]
     Indication: PAIN
     Dosage: 75 MG, 1X/DAY
     Route: 048
     Dates: start: 20120109, end: 20120101
  2. FLUCONAZOLE [Concomitant]
     Indication: ANTIFUNGAL TREATMENT
     Dosage: UNK
     Dates: start: 20120101
  3. INSULIN [Concomitant]
     Indication: DIABETES MELLITUS
     Dosage: UNK
     Dates: start: 20100101
  4. LEVOFLOXACIN [Concomitant]
     Dosage: UNK
     Dates: start: 20120101
  5. CYMBALTA [Concomitant]
     Indication: NERVOUS SYSTEM DISORDER
     Dosage: UNK
     Dates: start: 20120101
  6. ACICLOVIR [Concomitant]
     Indication: HERPES VIRUS INFECTION
     Dosage: UNK
     Dates: start: 20110901
  7. SINERGEN [Concomitant]
     Indication: HYPERTENSION
     Dosage: UNK
     Dates: start: 20080101

REACTIONS (1)
  - NEOPLASM MALIGNANT [None]
